APPROVED DRUG PRODUCT: XENEISOL
Active Ingredient: XENON XE-133
Strength: 18-25mCi/AMP
Dosage Form/Route: SOLUTION;INHALATION, INJECTION
Application: N017262 | Product #002
Applicant: MALLINCKRODT INC
Approved: Approved Prior to Jan 1, 1982 | RLD: No | RS: No | Type: DISCN